FAERS Safety Report 9897881 (Version 1)
Quarter: 2014Q1

REPORT INFORMATION
  Report Type: Spontaneous
  Country: US (occurrence: US)
  Receive Date: 20140214
  Receipt Date: 20140214
  Transmission Date: 20141002
  Serious: No
  Sender: FDA-Public Use
  Company Number: US-PFIZER INC-2014039042

PATIENT
  Sex: Female

DRUGS (1)
  1. GLUCOTROL XL [Suspect]
     Dosage: 2.5 MG, IN MORNING
     Route: 048

REACTIONS (4)
  - Blood glucose fluctuation [Unknown]
  - Nervousness [Unknown]
  - Malaise [Unknown]
  - Abdominal discomfort [Unknown]
